FAERS Safety Report 7298878-X (Version None)
Quarter: 2011Q1

REPORT INFORMATION
  Report Type: 
  Country: None (occurrence: None)
  Receive Date: 20110208
  Receipt Date: 20110131
  Transmission Date: 20110831
  Serious: Yes (Death, Life-Threatening, Other)
  Sender: FDA-Public Use
  Company Number: 2007JP000421

PATIENT
  Age: 57 Year
  Sex: Male
  Weight: 65 kg

DRUGS (12)
  1. METHYLPREDNISOLONE [Concomitant]
  2. TIZANIDINE HCL [Concomitant]
  3. S.M. (CALCIUM CARBONATE, CINNAMOMUM VERUM POWDER, COPTIS TRIFOLIA, DIA [Concomitant]
  4. FLOMOX (CEFCAPENE PIVOXIL HYDROCHLORIDE) [Concomitant]
  5. PROGRAF [Suspect]
     Indication: MYASTHENIA GRAVIS
     Dosage: 1.5 MG, BID, ORAL
     Route: 048
     Dates: start: 20050115, end: 20060915
  6. ONEALFA (ALFACALCIDOL) [Concomitant]
  7. MUCOSOLVAN (AMBROXOL HYDROCHLORIDE) [Concomitant]
  8. PREDNISOLONE [Concomitant]
  9. ATARAX [Concomitant]
  10. FAMOTIDINE [Suspect]
     Dosage: 10 MG, BID, ORAL
     Route: 048
     Dates: start: 20040820, end: 20060829
  11. COTRIM [Concomitant]
  12. NEORAL [Concomitant]

REACTIONS (8)
  - PNEUMONIA STAPHYLOCOCCAL [None]
  - LUNG DISORDER [None]
  - CONDITION AGGRAVATED [None]
  - STEVENS-JOHNSON SYNDROME [None]
  - RESPIRATORY FAILURE [None]
  - ALOPECIA [None]
  - THYMOMA [None]
  - SEPSIS [None]
